FAERS Safety Report 7471632-1 (Version None)
Quarter: 2011Q1

REPORT INFORMATION
  Report Type: 
  Country: None (occurrence: None)
  Receive Date: 20110302
  Receipt Date: 20101130
  Transmission Date: 20110831
  Serious: Yes (Death)
  Sender: FDA-Public Use
  Company Number: 163-21880-10102895

PATIENT
  Age: 55 Year
  Sex: Female

DRUGS (3)
  1. REVLIMID [Suspect]
     Indication: MULTIPLE MYELOMA
     Dosage: 5 MG, DAILY X 21 DAYS, PO, 15 MG, DAILY X 21 DAYS, PO, 15 MG, DAILY X 21 DAYS, PO
     Route: 048
     Dates: start: 20091001
  2. REVLIMID [Suspect]
     Indication: MULTIPLE MYELOMA
     Dosage: 5 MG, DAILY X 21 DAYS, PO, 15 MG, DAILY X 21 DAYS, PO, 15 MG, DAILY X 21 DAYS, PO
     Route: 048
     Dates: start: 20100826, end: 20101011
  3. REVLIMID [Suspect]
     Indication: MULTIPLE MYELOMA
     Dosage: 5 MG, DAILY X 21 DAYS, PO, 15 MG, DAILY X 21 DAYS, PO, 15 MG, DAILY X 21 DAYS, PO
     Route: 048
     Dates: start: 20090301

REACTIONS (2)
  - MULTIPLE MYELOMA [None]
  - DISEASE PROGRESSION [None]
